FAERS Safety Report 5403731-X (Version None)
Quarter: 2007Q3

REPORT INFORMATION
  Report Type: 
  Country: None (occurrence: None)
  Receive Date: 20070802
  Receipt Date: 20070730
  Transmission Date: 20080115
  Serious: Yes (Death, Hospitalization)
  Sender: FDA-Public Use
  Company Number: US-JNJFOC-20070604398

PATIENT
  Sex: Male

DRUGS (2)
  1. EXTRA STRENGTH TYLENOL [Suspect]
     Indication: DRUG USE FOR UNKNOWN INDICATION
  2. OTHER THERAPEUTIC PRODUCTS [Suspect]
     Indication: DRUG USE FOR UNKNOWN INDICATION

REACTIONS (5)
  - ACUTE HEPATIC FAILURE [None]
  - BRAIN DAMAGE [None]
  - HYPOTENSION [None]
  - RENAL FAILURE [None]
  - TACHYCARDIA [None]
